FAERS Safety Report 5771271-4 (Version None)
Quarter: 2008Q2

REPORT INFORMATION
  Report Type: 
  Country: None (occurrence: None)
  Receive Date: 20080613
  Receipt Date: 20080603
  Transmission Date: 20081010
  Serious: Yes (Life-Threatening)
  Sender: FDA-Public Use
  Company Number: GR-JNJFOC-20080601154

PATIENT

DRUGS (2)
  1. REMICADE [Suspect]
     Indication: DRUG USE FOR UNKNOWN INDICATION
     Dosage: 2ND INFUSION
     Route: 042
  2. ANTIHISTAMINES [Concomitant]

REACTIONS (4)
  - CYANOSIS [None]
  - DYSPNOEA [None]
  - RESPIRATORY DISORDER [None]
  - URTICARIA [None]
